FAERS Safety Report 4694996-0 (Version None)
Quarter: 2005Q2

REPORT INFORMATION
  Report Type: 
  Country: None (occurrence: None)
  Receive Date: 20050617
  Receipt Date: 20050608
  Transmission Date: 20051028
  Serious: Yes (Death)
  Sender: FDA-Public Use
  Company Number: GBR-2005-0001750

PATIENT
  Age: 59 Year
  Sex: Female

DRUGS (4)
  1. OXYCONTIN [Suspect]
  2. FENTANYL [Concomitant]
  3. TEMAZEPAM [Concomitant]
  4. NAPROXEN [Concomitant]

REACTIONS (1)
  - DEATH [None]
